FAERS Safety Report 10550334 (Version 2)
Quarter: 2014Q4

REPORT INFORMATION
  Report Type: Report from Study
  Country: CA (occurrence: CA)
  Receive Date: 20141029
  Receipt Date: 20141029
  Transmission Date: 20150529
  Serious: Yes (Other)
  Sender: FDA-Public Use
  Company Number: CA-ROCHE-1471554

PATIENT
  Sex: Male

DRUGS (6)
  1. RITUXAN [Suspect]
     Active Substance: RITUXIMAB
     Indication: RHEUMATOID ARTHRITIS
     Route: 042
     Dates: start: 20140922
  2. BRILINTA [Concomitant]
     Active Substance: TICAGRELOR
  3. ACETAMINOPHEN. [Concomitant]
     Active Substance: ACETAMINOPHEN
     Route: 048
     Dates: start: 20140922
  4. ROSUVASTATIN [Concomitant]
     Active Substance: ROSUVASTATIN
  5. METHYLPREDNISOLONE. [Concomitant]
     Active Substance: METHYLPREDNISOLONE
     Indication: PREMEDICATION
     Route: 042
     Dates: start: 20140922
  6. ASA [Concomitant]
     Active Substance: ASPIRIN

REACTIONS (4)
  - Pulmonary oedema [Unknown]
  - Malaise [Unknown]
  - Dyspnoea [Recovered/Resolved]
  - Back pain [Unknown]
